FAERS Safety Report 21883877 (Version 4)
Quarter: 2023Q1

REPORT INFORMATION
  Report Type: Report from Study
  Country: US (occurrence: US)
  Receive Date: 20230119
  Receipt Date: 20230323
  Transmission Date: 20230417
  Serious: Yes (Hospitalization)
  Sender: FDA-Public Use
  Company Number: US-ABBVIE-4256836

PATIENT
  Age: 52 Year
  Sex: Female

DRUGS (2)
  1. SKYRIZI [Suspect]
     Active Substance: RISANKIZUMAB-RZAA
     Indication: Crohn^s disease
     Dosage: FORM STRENGTH: 360 MG, SKYRIZI 360MG/2.4ML OBI
     Route: 042
     Dates: start: 20221031
  2. SKYRIZI [Suspect]
     Active Substance: RISANKIZUMAB-RZAA
     Dosage: FORM STRENGTH: 360 MG, SKYRIZI 360MG/2.4ML OBI
     Route: 042

REACTIONS (7)
  - Dizziness [Unknown]
  - Malaise [Unknown]
  - Autoimmune disorder [Unknown]
  - Hospitalisation [Unknown]
  - Myasthenia gravis [Unknown]
  - Crohn^s disease [Recovering/Resolving]
  - Dehydration [Unknown]

NARRATIVE: CASE EVENT DATE: 20230110
